FAERS Safety Report 21854004 (Version 1)
Quarter: 2023Q1

REPORT INFORMATION
  Report Type: Spontaneous
  Country: US (occurrence: None)
  Receive Date: 20230111
  Receipt Date: 20230111
  Transmission Date: 20230417
  Serious: Yes (Hospitalization)
  Sender: FDA-Public Use
  Company Number: None

PATIENT
  Sex: Male

DRUGS (4)
  1. JADENU [Suspect]
     Active Substance: DEFERASIROX
  2. DEFERASIROX [Concomitant]
     Active Substance: DEFERASIROX
  3. DEFERASIROX [Concomitant]
     Active Substance: DEFERASIROX
  4. DEFERASIROX [Concomitant]
     Active Substance: DEFERASIROX

REACTIONS (2)
  - Hospitalisation [None]
  - Therapy interrupted [None]
